FAERS Safety Report 8176528-8 (Version None)
Quarter: 2012Q1

REPORT INFORMATION
  Report Type: 
  Country: None (occurrence: None)
  Receive Date: 20120301
  Receipt Date: 20120223
  Transmission Date: 20120608
  Serious: Yes (Other)
  Sender: FDA-Public Use
  Company Number: US-PFIZER INC-2012049740

PATIENT
  Sex: Male

DRUGS (16)
  1. ZOCOR [Concomitant]
  2. XALATAN [Suspect]
     Dosage: UNK
  3. PREDNISONE [Concomitant]
  4. ANTIVERT [Concomitant]
  5. SEREVENT [Concomitant]
  6. POTASSIUM [Concomitant]
  7. NORVASC [Concomitant]
  8. MIDAMOR [Concomitant]
  9. SINGULAIR [Concomitant]
  10. CARDURA [Concomitant]
  11. LASIX [Concomitant]
  12. SYNTHROID [Concomitant]
  13. ZESTRIL [Concomitant]
  14. ZYLOPRIM [Concomitant]
  15. TIMOPTIC [Suspect]
     Dosage: UNK
  16. ALBUTEROL [Concomitant]

REACTIONS (4)
  - BRONCHIAL HYPERREACTIVITY [None]
  - CATARACT [None]
  - OCULAR HYPERTENSION [None]
  - GLAUCOMA [None]
